FAERS Safety Report 5588535-X (Version None)
Quarter: 2008Q1

REPORT INFORMATION
  Report Type: 
  Country: None (occurrence: None)
  Receive Date: 20080111
  Receipt Date: 20080103
  Transmission Date: 20080703
  Serious: Yes (Other)
  Sender: FDA-Public Use
  Company Number: US-ROCHE-522919

PATIENT
  Sex: Male
  Weight: 58.1 kg

DRUGS (12)
  1. ACCUTANE [Suspect]
     Indication: ACNE
     Dosage: PATIENT RENEWED PRESCRIPTION APPROXIMATELY 10 TIMES
     Route: 065
     Dates: start: 19940301, end: 19940801
  2. ACCUTANE [Suspect]
     Route: 065
     Dates: start: 19950101, end: 19960101
  3. ACCUTANE [Suspect]
     Route: 065
     Dates: start: 19960901, end: 19961201
  4. ACCUTANE [Suspect]
     Route: 065
     Dates: start: 19971201, end: 19981001
  5. ACCUTANE [Suspect]
     Route: 065
     Dates: start: 19990701, end: 19990801
  6. ACCUTANE [Suspect]
     Route: 065
     Dates: start: 19991201, end: 20000201
  7. ACCUTANE [Suspect]
     Route: 065
     Dates: start: 20000601
  8. ACCUTANE [Suspect]
     Route: 065
     Dates: start: 20001001, end: 20010201
  9. ACCUTANE [Suspect]
     Route: 065
     Dates: start: 20010801, end: 20011201
  10. ACCUTANE [Suspect]
     Route: 065
     Dates: start: 20021201, end: 20030101
  11. CLARITIN [Suspect]
     Route: 065
  12. ALLEGRA D 24 HOUR [Suspect]
     Route: 065

REACTIONS (13)
  - ABDOMINAL PAIN [None]
  - ANAEMIA [None]
  - BLOOD TRIGLYCERIDES INCREASED [None]
  - COLITIS ULCERATIVE [None]
  - CROHN'S DISEASE [None]
  - EMOTIONAL DISORDER [None]
  - EMOTIONAL DISTRESS [None]
  - FAECES DISCOLOURED [None]
  - GASTROINTESTINAL DISORDER [None]
  - HAEMATOCHEZIA [None]
  - INFLAMMATORY BOWEL DISEASE [None]
  - INTESTINAL HAEMORRHAGE [None]
  - RECTAL HAEMORRHAGE [None]
